FAERS Safety Report 9148965 (Version 1)
Quarter: 2013Q1

REPORT INFORMATION
  Report Type: Spontaneous
  Country: US (occurrence: US)
  Receive Date: 20130308
  Receipt Date: 20130308
  Transmission Date: 20140127
  Serious: No
  Sender: FDA-Public Use
  Company Number: US-ENDO PHARMACEUTICALS INC.-OPCR20121659

PATIENT
  Sex: Female

DRUGS (2)
  1. OPANA ER 20MG [Suspect]
     Indication: FIBROMYALGIA
     Route: 048
     Dates: start: 2012, end: 201205
  2. OPANA ER 20MG [Suspect]
     Route: 048
     Dates: start: 201205

REACTIONS (8)
  - Alopecia [Not Recovered/Not Resolved]
  - Dizziness [Not Recovered/Not Resolved]
  - Constipation [Not Recovered/Not Resolved]
  - Fatigue [Not Recovered/Not Resolved]
  - Nausea [Not Recovered/Not Resolved]
  - Hyperhidrosis [Not Recovered/Not Resolved]
  - Headache [Not Recovered/Not Resolved]
  - Drug ineffective [Not Recovered/Not Resolved]
